FAERS Safety Report 8304949-9 (Version None)
Quarter: 2012Q2

REPORT INFORMATION
  Report Type: 
  Country: None (occurrence: None)
  Receive Date: 20120423
  Receipt Date: 20120418
  Transmission Date: 20120825
  Serious: Yes (Life-Threatening, Hospitalization, Other)
  Sender: FDA-Public Use
  Company Number: FR-ASTRAZENECA-2012SE25510

PATIENT
  Age: 86 Year
  Sex: Female

DRUGS (8)
  1. DESLORATADINE [Concomitant]
  2. ATACAND [Suspect]
     Indication: HYPERTENSION
     Route: 048
     Dates: end: 20120213
  3. BISOPROLOL FUMARATE [Suspect]
     Indication: HYPERTENSION
     Route: 048
     Dates: end: 20120213
  4. ATACAND [Suspect]
     Route: 048
     Dates: start: 20120217
  5. INDAPAMIDE [Suspect]
     Indication: HYPERTENSION
     Route: 048
     Dates: end: 20120213
  6. CALCIUM CARBONATE [Concomitant]
  7. ATORVASTATIN [Concomitant]
  8. MEDIATENSYL [Suspect]
     Indication: HYPERTENSION
     Route: 048
     Dates: end: 20120213

REACTIONS (4)
  - ANAEMIA [None]
  - HYPOVOLAEMIC SHOCK [None]
  - THROMBOCYTOPENIA [None]
  - ACCIDENTAL OVERDOSE [None]
